FAERS Safety Report 21257165 (Version 1)
Quarter: 2022Q3

REPORT INFORMATION
  Report Type: Spontaneous
  Country: FR (occurrence: FR)
  Receive Date: 20220826
  Receipt Date: 20220826
  Transmission Date: 20221026
  Serious: Yes (Hospitalization)
  Sender: FDA-Public Use
  Company Number: None

PATIENT
  Age: 73 Year
  Sex: Female
  Weight: 56 kg

DRUGS (3)
  1. NITROFURANTOIN [Suspect]
     Active Substance: NITROFURANTOIN
     Indication: Pyelonephritis
     Dosage: DURATION :1 DAY
     Route: 065
     Dates: start: 20210702, end: 20210703
  2. CEFTRIAXONE SODIUM [Suspect]
     Active Substance: CEFTRIAXONE SODIUM
     Indication: Pyelonephritis
     Dosage: DURATION : 2 DAYS
     Route: 065
     Dates: start: 20210703, end: 20210705
  3. AMIKACIN SULFATE [Suspect]
     Active Substance: AMIKACIN SULFATE
     Indication: Pyelonephritis
     Dosage: DURATION :  2 YEARS
     Route: 065
     Dates: start: 20210703, end: 20210705

REACTIONS (2)
  - Fixed eruption [Recovered/Resolved]
  - Dermatitis bullous [Recovered/Resolved]

NARRATIVE: CASE EVENT DATE: 20210703
